FAERS Safety Report 22197379 (Version 1)
Quarter: 2023Q2

REPORT INFORMATION
  Report Type: Other
  Country: US (occurrence: US)
  Receive Date: 20230411
  Receipt Date: 20230411
  Transmission Date: 20230722
  Serious: Yes (Death, Other)
  Sender: FDA-Public Use
  Company Number: US-ALVOGEN-2023090342

PATIENT
  Age: 41 Year
  Sex: Male

DRUGS (4)
  1. FENTANYL [Suspect]
     Active Substance: FENTANYL
     Indication: Drug abuse
     Route: 051
  2. ACETYLFENTANYL [Suspect]
     Active Substance: ACETYLFENTANYL
     Indication: Drug abuse
     Route: 051
  3. METHADONE [Suspect]
     Active Substance: METHADONE HYDROCHLORIDE
     Indication: Drug abuse
     Route: 051
  4. METHAMPHETAMINE [Suspect]
     Active Substance: METHAMPHETAMINE
     Indication: Drug abuse
     Route: 051

REACTIONS (5)
  - Cardiac arrest [Fatal]
  - Respiratory arrest [Fatal]
  - Drug abuse [Fatal]
  - Prescription drug used without a prescription [Unknown]
  - Incorrect route of product administration [Unknown]
